FAERS Safety Report 10720911 (Version 2)
Quarter: 2015Q1

REPORT INFORMATION
  Report Type: Other
  Country: FR (occurrence: FR)
  Receive Date: 20150119
  Receipt Date: 20150122
  Transmission Date: 20150721
  Serious: Yes (Hospitalization, Other)
  Sender: FDA-Public Use
  Company Number: FR-MYLANLABS-2013SP007669

PATIENT

DRUGS (10)
  1. INEXIUM                            /01479302/ [Suspect]
     Active Substance: ESOMEPRAZOLE MAGNESIUM
     Indication: PRODUCT USED FOR UNKNOWN INDICATION
     Route: 048
     Dates: start: 20130410, end: 20130624
  2. ZOPHREN                            /00955302/ [Suspect]
     Active Substance: ONDANSETRON
     Indication: PRODUCT USED FOR UNKNOWN INDICATION
  3. OROKEN [Concomitant]
     Active Substance: CEFIXIME
     Indication: PRODUCT USED FOR UNKNOWN INDICATION
  4. TIENAM [Suspect]
     Active Substance: CILASTATIN SODIUM\IMIPENEM
     Indication: PRODUCT USED FOR UNKNOWN INDICATION
     Route: 041
     Dates: start: 20130526, end: 20130607
  5. AZACTAM [Suspect]
     Active Substance: AZTREONAM
     Indication: PRODUCT USED FOR UNKNOWN INDICATION
     Route: 041
     Dates: start: 20130607, end: 20130624
  6. XENETIX [Suspect]
     Active Substance: IOBITRIDOL
     Indication: COMPUTERISED TOMOGRAM
  7. VANCOMYCINE [Suspect]
     Active Substance: VANCOMYCIN
     Indication: PRODUCT USED FOR UNKNOWN INDICATION
     Route: 042
     Dates: start: 20130508, end: 20130624
  8. IOMERON [Suspect]
     Active Substance: IOMEPROL
     Indication: COMPUTERISED TOMOGRAM
     Dosage: UNK
  9. CANCIDAS [Suspect]
     Active Substance: CASPOFUNGIN ACETATE
     Indication: PRODUCT USED FOR UNKNOWN INDICATION
     Route: 041
     Dates: start: 201305
  10. PIPERACILLIN AND TAZOBACTAM [Suspect]
     Active Substance: PIPERACILLIN SODIUM\TAZOBACTAM SODIUM
     Indication: PRODUCT USED FOR UNKNOWN INDICATION
     Route: 041
     Dates: start: 20130508, end: 20130526

REACTIONS (4)
  - Drug reaction with eosinophilia and systemic symptoms [Recovered/Resolved]
  - Rash maculo-papular [Recovered/Resolved]
  - Eosinophil count increased [Recovered/Resolved]
  - Liver injury [Recovered/Resolved]

NARRATIVE: CASE EVENT DATE: 20130601
